FAERS Safety Report 10051217 (Version 2)
Quarter: 2014Q2

REPORT INFORMATION
  Report Type: Spontaneous
  Country: NL (occurrence: NL)
  Receive Date: 20140401
  Receipt Date: 20140404
  Transmission Date: 20141212
  Serious: Yes (Hospitalization)
  Sender: FDA-Public Use
  Company Number: NL-PFIZER INC-2014089354

PATIENT
  Age: 40 Year
  Sex: Female

DRUGS (1)
  1. ETHINYLESTRADIOL/LEVONORGESTREL [Suspect]
     Indication: CONTRACEPTION
     Dosage: 1 DF, 1X/DAY
     Dates: start: 2012, end: 201304

REACTIONS (1)
  - Hepatitis [Recovered/Resolved]
